FAERS Safety Report 4386442-1 (Version None)
Quarter: 2004Q2

REPORT INFORMATION
  Report Type: 
  Country: None (occurrence: None)
  Receive Date: 20040623
  Receipt Date: 20040608
  Transmission Date: 20050107
  Serious: Yes (Other)
  Sender: FDA-Public Use
  Company Number: 2004EU001190

PATIENT
  Age: 7 Month

DRUGS (3)
  1. PROGRAF [Suspect]
     Indication: HEART TRANSPLANT
     Dosage: D
  2. IMUREK [Concomitant]
  3. CAPTOPRIL [Concomitant]

REACTIONS (1)
  - HAEMATOCHEZIA [None]
